FAERS Safety Report 21159220 (Version 2)
Quarter: 2022Q3

REPORT INFORMATION
  Report Type: Spontaneous
  Country: JP (occurrence: JP)
  Receive Date: 20220802
  Receipt Date: 20220824
  Transmission Date: 20221027
  Serious: Yes (Hospitalization)
  Sender: FDA-Public Use
  Company Number: JP-DSJP-DSJ-2022-123965

PATIENT
  Age: 79 Year
  Sex: Female

DRUGS (15)
  1. DENOSUMAB [Suspect]
     Active Substance: DENOSUMAB
     Indication: Osteoporosis
     Dosage: 60 MILLIGRAM
     Route: 058
     Dates: start: 20220526, end: 20220526
  2. CALCIUM CARBONATE\CHOLECALCIFEROL\MAGNESIUM CARBONATE [Suspect]
     Active Substance: CALCIUM CARBONATE\CHOLECALCIFEROL\MAGNESIUM CARBONATE
     Indication: Osteoporosis
     Dosage: 1 DOSAGE FORM, Q12H
     Route: 048
     Dates: start: 20220526, end: 20220607
  3. HERBAL NOS [Concomitant]
     Active Substance: HERBALS
     Indication: Dementia
     Dosage: 2.5 GRAM, QD
     Route: 048
     Dates: start: 20210121
  4. HERBAL NOS [Concomitant]
     Active Substance: HERBALS
     Indication: Panic disorder
     Dosage: UNK
  5. LORAZEPAM [Concomitant]
     Active Substance: LORAZEPAM
     Indication: Hypertension
     Dosage: 0.5 MILLIGRAM, QD
     Route: 048
     Dates: start: 20210304
  6. LEXAPRO [Concomitant]
     Active Substance: ESCITALOPRAM OXALATE
     Indication: Dementia
     Dosage: 5 MILLIGRAM, QD
     Route: 048
     Dates: start: 20210415
  7. LEXAPRO [Concomitant]
     Active Substance: ESCITALOPRAM OXALATE
     Indication: Panic disorder
     Dosage: UNK
  8. ONEALFA [Concomitant]
     Active Substance: ALFACALCIDOL
     Indication: Zinc deficiency
     Dosage: 0.5 MICROGRAM, QD
     Route: 048
     Dates: start: 20160121
  9. METHYLCOBALAMIN [Concomitant]
     Active Substance: METHYLCOBALAMIN
     Indication: Vitamin B complex deficiency
     Dosage: 500 MICROGRAM, TID
     Route: 048
     Dates: start: 20171130
  10. DIETARY SUPPLEMENT\PROBIOTICS [Concomitant]
     Active Substance: DIETARY SUPPLEMENT\PROBIOTICS
     Indication: Diarrhoea
     Dosage: 1 DOSAGE FORM, TID
     Route: 048
     Dates: start: 20201228
  11. HERBESSER [Concomitant]
     Active Substance: DILTIAZEM HYDROCHLORIDE
     Indication: Hypertension
     Dosage: 1 DOSAGE FORM, QD
     Route: 048
     Dates: start: 202101
  12. CANDESARTAN CILEXETIL [Concomitant]
     Active Substance: CANDESARTAN CILEXETIL
     Indication: Hypertension
     Dosage: 4 MILLIGRAM, QD
     Route: 048
     Dates: start: 202101
  13. LANSOPRAZOLE [Concomitant]
     Active Substance: LANSOPRAZOLE
     Indication: Gastrooesophageal reflux disease
     Dosage: 15 MILLIGRAM, QD
     Route: 048
     Dates: start: 202101
  14. SODIUM FERROUS CITRATE [Concomitant]
     Active Substance: SODIUM FERROUS CITRATE
     Indication: Iron deficiency anaemia
     Dosage: 50 MILLIGRAM, QD
     Route: 048
     Dates: start: 20220428, end: 20220623
  15. SIMPONI [Concomitant]
     Active Substance: GOLIMUMAB
     Indication: Rheumatoid arthritis
     Dosage: 50 MILLIGRAM
     Route: 058
     Dates: start: 201408

REACTIONS (2)
  - Drug eruption [Recovering/Resolving]
  - Rash [Recovering/Resolving]

NARRATIVE: CASE EVENT DATE: 20220603
